FAERS Safety Report 6497769-1 (Version None)
Quarter: 2009Q4

REPORT INFORMATION
  Report Type: 
  Country: None (occurrence: None)
  Receive Date: 20091211
  Receipt Date: 20091126
  Transmission Date: 20100525
  Serious: Yes (Other)
  Sender: FDA-Public Use
  Company Number: DSJ-2009-14370

PATIENT
  Age: 72 Year
  Sex: Female

DRUGS (5)
  1. OLMESARTAN MEDOXOMIL [Suspect]
     Indication: DRUG USE FOR UNKNOWN INDICATION
     Dosage: PER ORAL
     Route: 048
  2. CONIEL (BENIDIPINE HYDROCHLORIDE) (TABLET) (BENIDIPINE HYDROCHLORIDE) [Suspect]
     Indication: DRUG USE FOR UNKNOWN INDICATION
     Dosage: PER ORAL
  3. ALDOMET [Suspect]
     Indication: DRUG USE FOR UNKNOWN INDICATION
     Dosage: PER ORAL
  4. MUCOSTA (REBAMIPIDE) (PREPARATION FOR ORAL USE (NOS)) (REBAMIPIDE) [Suspect]
     Indication: DRUG USE FOR UNKNOWN INDICATION
     Dosage: PER  ORAL
     Route: 048
  5. CELECOXIB [Concomitant]

REACTIONS (1)
  - INTERSTITIAL LUNG DISEASE [None]
